FAERS Safety Report 7685232-1 (Version None)
Quarter: 2011Q3

REPORT INFORMATION
  Report Type: 
  Country: None (occurrence: None)
  Receive Date: 20110816
  Receipt Date: 20110808
  Transmission Date: 20111222
  Serious: Yes (Hospitalization, Disabling, Other)
  Sender: FDA-Public Use
  Company Number: US-ELI_LILLY_AND_COMPANY-US201007000552

PATIENT
  Sex: Female
  Weight: 95.238 kg

DRUGS (13)
  1. LUMIGAN [Concomitant]
  2. COUMADIN [Concomitant]
     Dosage: 3 MG, QD
  3. GLIMEPIRIDE [Concomitant]
     Dosage: 4 MG, QD
  4. ATENOLOL [Concomitant]
     Dosage: 50 MG, QD
  5. LUTEIN [Concomitant]
     Dosage: 6 MG, QD
  6. FUROSEMIDE [Concomitant]
     Dosage: 40 MG, QD
  7. ALPHAGAN [Concomitant]
  8. ENALAPRIL MALEATE [Concomitant]
     Dosage: 5 MG, QD
  9. METFORMIN HCL [Concomitant]
     Dosage: 1000 MG, BID
  10. BYETTA [Suspect]
     Dosage: UNK, UNKNOWN
     Dates: start: 20070830, end: 20090501
  11. NORVASC [Concomitant]
     Dosage: 10 MG, QD
  12. NEXIUM [Concomitant]
     Dosage: 40 MG, QD
  13. ZOCOR [Concomitant]
     Dosage: 80 MG, EACH EVENING

REACTIONS (4)
  - PANCREATIC DISORDER [None]
  - RENAL DISORDER [None]
  - PANCREATITIS [None]
  - INJURY [None]
